FAERS Safety Report 11918878 (Version 2)
Quarter: 2016Q3

REPORT INFORMATION
  Report Type: Spontaneous
  Country: US (occurrence: US)
  Receive Date: 20160115
  Receipt Date: 20160907
  Transmission Date: 20161109
  Serious: Yes (Other)
  Sender: FDA-Public Use
  Company Number: US-JNJFOC-20151205096

PATIENT
  Age: 47 Year
  Sex: Male
  Weight: 154.22 kg

DRUGS (29)
  1. LEVAQUIN [Suspect]
     Active Substance: LEVOFLOXACIN
     Indication: UPPER RESPIRATORY TRACT INFECTION
     Route: 048
     Dates: end: 20100115
  2. LEVAQUIN [Suspect]
     Active Substance: LEVOFLOXACIN
     Indication: UPPER RESPIRATORY TRACT INFECTION
     Route: 048
     Dates: end: 20100126
  3. LEVAQUIN [Suspect]
     Active Substance: LEVOFLOXACIN
     Indication: SINUSITIS
     Route: 048
     Dates: end: 20100115
  4. LEVAQUIN [Suspect]
     Active Substance: LEVOFLOXACIN
     Indication: SINUSITIS
     Route: 048
     Dates: start: 20100101
  5. LEVAQUIN [Suspect]
     Active Substance: LEVOFLOXACIN
     Indication: PNEUMONIA
     Route: 048
     Dates: end: 20100126
  6. LEVAQUIN [Suspect]
     Active Substance: LEVOFLOXACIN
     Indication: COUGH
     Route: 048
     Dates: start: 20100112
  7. LEVAQUIN [Suspect]
     Active Substance: LEVOFLOXACIN
     Indication: COUGH
     Route: 048
     Dates: end: 20100126
  8. VERAMIL [Concomitant]
     Indication: HYPERTENSION
     Route: 065
     Dates: start: 20050615, end: 20110803
  9. LEVAQUIN [Suspect]
     Active Substance: LEVOFLOXACIN
     Indication: PNEUMONIA
     Route: 048
     Dates: start: 201003
  10. CEPHALEXINE [Concomitant]
     Active Substance: CEPHALEXIN
     Indication: INFECTION
     Route: 065
     Dates: start: 20150507, end: 20150517
  11. LEVAQUIN [Suspect]
     Active Substance: LEVOFLOXACIN
     Indication: UPPER RESPIRATORY TRACT INFECTION
     Route: 048
     Dates: start: 20100112
  12. LEVAQUIN [Suspect]
     Active Substance: LEVOFLOXACIN
     Indication: COUGH
     Route: 048
     Dates: start: 201003
  13. LEVAQUIN [Suspect]
     Active Substance: LEVOFLOXACIN
     Indication: COUGH
     Route: 048
     Dates: start: 20100101
  14. ATORVASTATIN [Concomitant]
     Active Substance: ATORVASTATIN
     Indication: BLOOD CHOLESTEROL INCREASED
     Route: 065
     Dates: start: 20120130, end: 20150715
  15. LEVAQUIN [Suspect]
     Active Substance: LEVOFLOXACIN
     Indication: SINUSITIS
     Route: 048
     Dates: start: 201003
  16. LEVAQUIN [Suspect]
     Active Substance: LEVOFLOXACIN
     Indication: SINUSITIS
     Route: 048
     Dates: start: 20100112
  17. LEVAQUIN [Suspect]
     Active Substance: LEVOFLOXACIN
     Indication: COUGH
     Route: 048
     Dates: end: 20100115
  18. NIACIN. [Concomitant]
     Active Substance: NIACIN
     Indication: BLOOD CHOLESTEROL INCREASED
     Route: 065
  19. CEPHALEXINE [Concomitant]
     Active Substance: CEPHALEXIN
     Indication: INFECTION
     Dosage: 25 MG-37.5 MG
     Route: 065
     Dates: start: 20070125, end: 20071002
  20. LEVAQUIN [Suspect]
     Active Substance: LEVOFLOXACIN
     Indication: PNEUMONIA
     Route: 048
     Dates: start: 20100101
  21. BISOPROLOL [Concomitant]
     Active Substance: BISOPROLOL
     Indication: HYPERTENSION
     Dosage: 6.25-10 MG
     Route: 065
     Dates: start: 20120804, end: 20150715
  22. VERAMIL [Concomitant]
     Indication: HYPERTENSION
     Route: 065
     Dates: start: 20111017, end: 20150605
  23. TRIAMTERENE. [Concomitant]
     Active Substance: TRIAMTERENE
     Indication: DIURETIC THERAPY
     Dosage: 25 MG-37.5 MG
     Route: 065
     Dates: start: 20050719, end: 20150715
  24. CEPHALEXINE [Concomitant]
     Active Substance: CEPHALEXIN
     Indication: INFECTION
     Route: 065
     Dates: start: 20100107, end: 20100201
  25. LEVAQUIN [Suspect]
     Active Substance: LEVOFLOXACIN
     Indication: UPPER RESPIRATORY TRACT INFECTION
     Route: 048
     Dates: start: 201003
  26. LEVAQUIN [Suspect]
     Active Substance: LEVOFLOXACIN
     Indication: UPPER RESPIRATORY TRACT INFECTION
     Route: 048
     Dates: start: 20100101
  27. LEVAQUIN [Suspect]
     Active Substance: LEVOFLOXACIN
     Indication: SINUSITIS
     Route: 048
     Dates: end: 20100126
  28. LEVAQUIN [Suspect]
     Active Substance: LEVOFLOXACIN
     Indication: PNEUMONIA
     Route: 048
     Dates: end: 20100115
  29. LEVAQUIN [Suspect]
     Active Substance: LEVOFLOXACIN
     Indication: PNEUMONIA
     Route: 048
     Dates: start: 20100112

REACTIONS (2)
  - Neuropathy peripheral [Not Recovered/Not Resolved]
  - Musculoskeletal pain [Not Recovered/Not Resolved]

NARRATIVE: CASE EVENT DATE: 201001
